FAERS Safety Report 8611986 (Version 3)
Quarter: 2012Q4

REPORT INFORMATION
  Report Type: 
  Country: JP (occurrence: JP)
  Receive Date: 20120613
  Receipt Date: 20120914
  Transmission Date: 20130627
  Serious: Yes (Hospitalization, Other)
  Sender: FDA-Public Use
  Company Number: PHHY2012JP049956

PATIENT
  Age: 61 Year
  Sex: Male

DRUGS (4)
  1. DIOVAN [Suspect]
     Indication: HYPERTENSION
     Route: 048
  2. LANDEL [Suspect]
     Route: 048
  3. PREDONINE [Concomitant]
  4. PARIET [Concomitant]
     Route: 048

REACTIONS (10)
  - Acute abdomen [Unknown]
  - Vomiting [Unknown]
  - Back pain [Unknown]
  - Small bowel angioedema [Recovered/Resolved]
  - Gastrointestinal oedema [Unknown]
  - Blood pressure increased [Recovered/Resolved]
  - Blood creatinine increased [Unknown]
  - Ascites [Unknown]
  - Inflammation [Unknown]
  - Blood urea increased [Unknown]
